FAERS Safety Report 9432767 (Version 1)
Quarter: 2013Q3

REPORT INFORMATION
  Report Type: Report from Study
  Country: TR (occurrence: TR)
  Receive Date: 20130731
  Receipt Date: 20130731
  Transmission Date: 20140515
  Serious: Yes (Other)
  Sender: FDA-Public Use
  Company Number: TR-BAYER-2013-091410

PATIENT
  Sex: Male

DRUGS (1)
  1. VARDENAFIL HYDROCHLORIDE (ORAL) [Suspect]
     Indication: ERECTILE DYSFUNCTION

REACTIONS (4)
  - Eye haemorrhage [None]
  - Headache [None]
  - Visual impairment [None]
  - Drug ineffective [None]
